FAERS Safety Report 7996284-3 (Version None)
Quarter: 2011Q4

REPORT INFORMATION
  Report Type: 
  Country: None (occurrence: None)
  Receive Date: 20111220
  Receipt Date: 20111207
  Transmission Date: 20120403
  Serious: Yes (Other)
  Sender: FDA-Public Use
  Company Number: CA-ABBOTT-10P-028-0666417-00

PATIENT
  Sex: Female
  Weight: 61.8 kg

DRUGS (1)
  1. MAVIK [Suspect]
     Indication: ESSENTIAL HYPERTENSION
     Dosage: 2 MG DAILY
     Route: 048
     Dates: start: 20100308

REACTIONS (3)
  - MOBILITY DECREASED [None]
  - FALL [None]
  - LOWER LIMB FRACTURE [None]
